FAERS Safety Report 5398972-4 (Version None)
Quarter: 2007Q3

REPORT INFORMATION
  Report Type: 
  Country: None (occurrence: None)
  Receive Date: 20070724
  Receipt Date: 20070724
  Transmission Date: 20080115
  Serious: Yes (Life-Threatening, Hospitalization)
  Sender: FDA-Public Use
  Company Number: None

PATIENT
  Age: 60 Year
  Sex: Male
  Weight: 81 kg

DRUGS (15)
  1. RITUXAN [Suspect]
     Indication: RENAL TRANSPLANT
     Dosage: 50 MG UP TO 200MG/HR/IV
     Route: 042
     Dates: start: 20070718
  2. CELLCEPT [Concomitant]
  3. ASPIRIN [Concomitant]
  4. ACETAMINOPHEN [Concomitant]
  5. DIPHENHYDRAMINE HCL [Concomitant]
  6. PRED [Concomitant]
  7. LIPITOR [Concomitant]
  8. ZETIA [Concomitant]
  9. ISOSORBIDE DINITRATE [Concomitant]
  10. METOPROLOL SUCCINATE [Concomitant]
  11. AMBIEN [Concomitant]
  12. RENAGEL [Concomitant]
  13. SYNTHROID [Concomitant]
  14. LANTUS [Concomitant]
  15. HUMALOG [Concomitant]

REACTIONS (2)
  - INFUSION RELATED REACTION [None]
  - MYOCARDIAL INFARCTION [None]
